FAERS Safety Report 4736848-3 (Version None)
Quarter: 2005Q3

REPORT INFORMATION
  Report Type: 
  Country: None (occurrence: None)
  Receive Date: 20050805
  Receipt Date: 20050722
  Transmission Date: 20060218
  Serious: Yes (Hospitalization)
  Sender: FDA-Public Use
  Company Number: 2005US000802

PATIENT
  Age: 32 Year
  Sex: Female
  Weight: 57.5 kg

DRUGS (3)
  1. PROGRAF [Suspect]
     Indication: PROPHYLAXIS AGAINST TRANSPLANT REJECTION
     Dosage: 1.50 MG, BID, ORAL
     Route: 048
     Dates: start: 20020501
  2. PROGRAF [Suspect]
     Indication: PROPHYLAXIS AGAINST TRANSPLANT REJECTION
     Dosage: 1.50 MG, BID, ORAL
     Route: 048
     Dates: start: 20050223
  3. CELLCEPT [Concomitant]

REACTIONS (2)
  - ADNEXA UTERI CYST [None]
  - PELVIC INFLAMMATORY DISEASE [None]
